FAERS Safety Report 4446395-4 (Version None)
Quarter: 2004Q3

REPORT INFORMATION
  Report Type: 
  Country: None (occurrence: None)
  Receive Date: 20040902
  Receipt Date: 20040823
  Transmission Date: 20050211
  Serious: No
  Sender: FDA-Public Use
  Company Number: 2004SE04730

PATIENT
  Age: 73 Year
  Sex: Male

DRUGS (15)
  1. AMIAS [Suspect]
     Indication: HYPERTENSION
     Dosage: 8 MG DAILY PO
     Route: 048
     Dates: start: 20040419
  2. NICORANDIL [Concomitant]
  3. EZETROL [Concomitant]
  4. IMDUR [Concomitant]
  5. FERROUS SULFATE TAB [Concomitant]
  6. LORATADINE [Concomitant]
  7. GLUCERYL TRINITRATE [Concomitant]
  8. RANITIDINE [Concomitant]
  9. BENDROFLUAZIDE [Concomitant]
  10. BETAMETHASONE VALERATE [Concomitant]
  11. LOTRIDERM [Concomitant]
  12. OILATUM PLUS [Concomitant]
  13. DAKTACORT [Concomitant]
  14. DERMOVATE [Concomitant]
  15. FELODIPINE [Concomitant]

REACTIONS (1)
  - VASCULITIS [None]
